FAERS Safety Report 15880207 (Version 1)
Quarter: 2019Q1

REPORT INFORMATION
  Report Type: Report from Study
  Country: US (occurrence: US)
  Receive Date: 20190128
  Receipt Date: 20190128
  Transmission Date: 20190417
  Serious: Yes (Hospitalization)
  Sender: FDA-Public Use
  Company Number: US-GILEAD-2019-0386592

PATIENT
  Age: 73 Year
  Sex: Female

DRUGS (3)
  1. AMBRISENTAN [Suspect]
     Active Substance: AMBRISENTAN
     Indication: PULMONARY ARTERIAL HYPERTENSION
     Dosage: 10 MG, QD
     Route: 065
     Dates: start: 20180918, end: 20190123
  2. PREDNISONE. [Concomitant]
     Active Substance: PREDNISONE
  3. FUROSEMIDE. [Concomitant]
     Active Substance: FUROSEMIDE

REACTIONS (2)
  - Fluid retention [Recovered/Resolved]
  - Blood count abnormal [Unknown]

NARRATIVE: CASE EVENT DATE: 20190116
